FAERS Safety Report 12187412 (Version 11)
Quarter: 2017Q1

REPORT INFORMATION
  Report Type: Report from Study
  Country: CA (occurrence: CA)
  Receive Date: 20160317
  Receipt Date: 20170329
  Transmission Date: 20170428
  Serious: Yes (Death, Hospitalization, Other)
  Sender: FDA-Public Use
  Company Number: PHHY2014CA097822

PATIENT
  Age: 65 Year
  Sex: Female

DRUGS (3)
  1. SANDOSTATIN [Suspect]
     Active Substance: OCTREOTIDE ACETATE
     Indication: NEUROENDOCRINE TUMOUR
     Dosage: 200 UG, TID (UNTIL 2 WEEKS POST FIRST LAR)
     Route: 058
     Dates: start: 201404, end: 20140722
  2. SANDOSTATIN LAR DEPOT [Suspect]
     Active Substance: OCTREOTIDE ACETATE
     Indication: NEUROENDOCRINE TUMOUR
     Dosage: 30 MG, QMO (REPORTED AS EVERY 4 WEEKS)
     Route: 030
     Dates: start: 20140708, end: 20150317
  3. SANDOSTATIN LAR DEPOT [Suspect]
     Active Substance: OCTREOTIDE ACETATE
     Dosage: 30 MG, EVERY 21 DAYS/EVERY 3 WEEKS
     Route: 030
     Dates: start: 20150415

REACTIONS (20)
  - Blood pressure systolic increased [Unknown]
  - Faeces soft [Unknown]
  - Dyspnoea [Unknown]
  - Abdominal pain [Unknown]
  - Syringe issue [Unknown]
  - Fluid retention [Unknown]
  - Blood glucose decreased [Unknown]
  - Asthenia [Unknown]
  - Death [Fatal]
  - Hepatic neoplasm [Unknown]
  - Herpes zoster [Recovered/Resolved]
  - Back pain [Recovered/Resolved]
  - Drug administration error [Unknown]
  - Ascites [Unknown]
  - Diarrhoea [Unknown]
  - Inappropriate schedule of drug administration [Unknown]
  - Blood pressure increased [Unknown]
  - Blood pressure fluctuation [Unknown]
  - Malignant neoplasm progression [Unknown]
  - Heart rate decreased [Unknown]

NARRATIVE: CASE EVENT DATE: 2014
